FAERS Safety Report 21412676 (Version 1)
Quarter: 2022Q4

REPORT INFORMATION
  Report Type: Spontaneous
  Country: US (occurrence: US)
  Receive Date: 20221005
  Receipt Date: 20221005
  Transmission Date: 20230112
  Serious: No
  Sender: FDA-Public Use
  Company Number: US-SA-SAC20220927001524

PATIENT
  Age: 73 Year
  Sex: Female

DRUGS (1)
  1. DUPIXENT [Suspect]
     Active Substance: DUPILUMAB
     Indication: Dermatitis atopic
     Dosage: UNK
     Route: 058

REACTIONS (17)
  - Asthenia [Unknown]
  - Depressed mood [Unknown]
  - Oropharyngeal pain [Unknown]
  - Eye pruritus [Unknown]
  - Pruritus [Unknown]
  - Hypotension [Unknown]
  - Pyrexia [Unknown]
  - Nail disorder [Unknown]
  - Dermatitis allergic [Unknown]
  - Condition aggravated [Unknown]
  - Rash [Unknown]
  - Urticaria [Unknown]
  - Insomnia [Unknown]
  - Immune system disorder [Unknown]
  - Blood glucose decreased [Unknown]
  - Hyperhidrosis [Unknown]
  - Peripheral swelling [Unknown]

NARRATIVE: CASE EVENT DATE: 20220901
